FAERS Safety Report 4475000-6 (Version None)
Quarter: 2004Q3

REPORT INFORMATION
  Report Type: 
  Country: None (occurrence: None)
  Receive Date: 20040923
  Receipt Date: 20040719
  Transmission Date: 20050211
  Serious: No
  Sender: FDA-Public Use
  Company Number: USA040671205

PATIENT
  Age: 41 Year
  Sex: Female
  Weight: 91 kg

DRUGS (1)
  1. FORTEO [Suspect]
     Indication: OSTEOPOROSIS
     Dates: start: 20040621

REACTIONS (3)
  - HEART RATE INCREASED [None]
  - INJECTION SITE ERYTHEMA [None]
  - RASH PAPULAR [None]
